FAERS Safety Report 7454481-X (Version None)
Quarter: 2011Q2

REPORT INFORMATION
  Report Type: 
  Country: None (occurrence: None)
  Receive Date: 20110503
  Receipt Date: 20110419
  Transmission Date: 20111010
  Serious: Yes (Hospitalization)
  Sender: FDA-Public Use
  Company Number: JP-JNJFOC-20110400211

PATIENT
  Sex: Male
  Weight: 50 kg

DRUGS (4)
  1. REMICADE [Suspect]
     Dosage: 1ST INFUSION
     Route: 042
  2. REMICADE [Suspect]
     Dosage: 6TH INFUSION
     Route: 042
  3. REMICADE [Suspect]
     Indication: PSORIASIS
     Dosage: 5TH INFUSION
     Route: 042
  4. REMICADE [Suspect]
     Dosage: 1ST INFUSION
     Route: 042

REACTIONS (1)
  - BLADDER CANCER [None]
